FAERS Safety Report 24385819 (Version 1)
Quarter: 2024Q4

REPORT INFORMATION
  Report Type: Spontaneous
  Country: US (occurrence: US)
  Receive Date: 20241001
  Receipt Date: 20241001
  Transmission Date: 20250115
  Serious: No
  Sender: Harrow Health
  Company Number: US-IMP-2024000788

PATIENT
  Sex: Female

DRUGS (1)
  1. VEVYE [Suspect]
     Active Substance: CYCLOSPORINE
     Indication: Product used for unknown indication
     Route: 047

REACTIONS (3)
  - Drug hypersensitivity [Unknown]
  - Eyelid pain [Unknown]
  - Swelling of eyelid [Unknown]
